FAERS Safety Report 26196840 (Version 1)
Quarter: 2025Q4

REPORT INFORMATION
  Report Type: Spontaneous
  Country: CN (occurrence: CN)
  Receive Date: 20251224
  Receipt Date: 20251224
  Transmission Date: 20260117
  Serious: Yes (Hospitalization)
  Sender: ACCORD
  Company Number: None

PATIENT
  Age: 61 Year
  Sex: Female
  Weight: 55.5 kg

DRUGS (2)
  1. TRASTUZUMAB [Suspect]
     Active Substance: TRASTUZUMAB
     Indication: Breast cancer
     Dosage: 600 MILLIGRAM, Q3W, IV DRIP, STRENGTH: 60 MG
     Route: 042
     Dates: start: 20250807, end: 20251120
  2. PYROTINIB [Suspect]
     Active Substance: PYROTINIB
     Indication: Breast cancer
     Dosage: 400 MILLIGRAM, QD
     Route: 048
     Dates: start: 20250808, end: 20251120

REACTIONS (1)
  - Drug eruption [Recovering/Resolving]

NARRATIVE: CASE EVENT DATE: 20251120
